FAERS Safety Report 9125818 (Version 1)
Quarter: 2013Q1

REPORT INFORMATION
  Report Type: Spontaneous
  Country: US (occurrence: US)
  Receive Date: 20130228
  Receipt Date: 20130228
  Transmission Date: 20140127
  Serious: Yes (Other)
  Sender: FDA-Public Use
  Company Number: US-009507513-1302USA012534

PATIENT
  Sex: Male

DRUGS (7)
  1. JANUVIA [Suspect]
     Indication: DIABETES MELLITUS
     Dosage: 100 MG, PER DAY
     Route: 048
  2. LISINOPRIL [Concomitant]
  3. ASPIRIN [Concomitant]
  4. LOPRESSOR [Concomitant]
  5. CRESTOR [Concomitant]
  6. AMARYL [Concomitant]
  7. LANTUS [Concomitant]

REACTIONS (1)
  - Pancreatitis [Recovered/Resolved]
